FAERS Safety Report 19877366 (Version 1)
Quarter: 2021Q3

REPORT INFORMATION
  Report Type: Spontaneous
  Country: US (occurrence: US)
  Receive Date: 20210923
  Receipt Date: 20210923
  Transmission Date: 20211014
  Serious: No
  Sender: FDA-Public Use
  Company Number: None

PATIENT
  Age: 62 Year
  Sex: Female
  Weight: 65.25 kg

DRUGS (1)
  1. CANNAAID DELTA 8 OIL [.DELTA.8?TETRAHYDROCANNABINOL\HERBALS] [Suspect]
     Active Substance: .DELTA.8-TETRAHYDROCANNABINOL\HERBALS
     Indication: RELAXATION THERAPY
     Dosage: ?          QUANTITY:1 1 ML;?
     Route: 048
     Dates: start: 20210915, end: 20210915

REACTIONS (9)
  - Incorrect dose administered [None]
  - Fatigue [None]
  - Panic attack [None]
  - Tremor [None]
  - Muscular weakness [None]
  - Dizziness [None]
  - Nausea [None]
  - Hallucination [None]
  - Dry mouth [None]

NARRATIVE: CASE EVENT DATE: 20210916
